FAERS Safety Report 9536106 (Version 5)
Quarter: 2013Q4

REPORT INFORMATION
  Report Type: Spontaneous
  Country: AT (occurrence: AT)
  Receive Date: 20130919
  Receipt Date: 20131025
  Transmission Date: 20140711
  Serious: Yes (Life-Threatening, Hospitalization, Other)
  Sender: FDA-Public Use
  Company Number: AT-ASTRAZENECA-2013SE68713

PATIENT
  Age: 26451 Day
  Sex: Male
  Weight: 87 kg

DRUGS (7)
  1. ACEMIN [Suspect]
     Indication: HYPERTENSION
     Dosage: 5 MG, DAILY, CUMULATIVE DOSE TO THE FIRST REACTION: 14610 MG
     Route: 048
     Dates: start: 2005, end: 20130914
  2. CASODEX [Interacting]
     Indication: ANTIANDROGEN THERAPY
     Dosage: 8 MONTH, DAY/ONE
     Route: 048
     Dates: start: 2013
  3. CASODEX [Interacting]
     Indication: HORMONE THERAPY
     Dosage: 8 MONTH, DAY/ONE
     Route: 048
     Dates: start: 2013
  4. AERIUS [Interacting]
     Indication: SEASONAL ALLERGY
     Dosage: TWO WEEKS DAILY
     Route: 065
     Dates: start: 2013
  5. LISTERINE MOUTHWASH [Interacting]
     Dosage: DAILY, USED MORE THAT ONE YEAR
     Route: 048
     Dates: end: 20130923
  6. CONCOR [Interacting]
     Indication: HYPERTENSION
     Route: 065
     Dates: start: 2005
  7. ACECOMB [Concomitant]
     Indication: HYPERTENSION
     Route: 048

REACTIONS (9)
  - Drug interaction [Unknown]
  - Arthropod bite [Unknown]
  - Circulatory collapse [Unknown]
  - Head injury [Unknown]
  - Hypertensive crisis [Unknown]
  - Joint injury [Unknown]
  - Anaphylactic shock [Recovered/Resolved with Sequelae]
  - Syncope [Unknown]
  - Labile blood pressure [Recovered/Resolved]
